FAERS Safety Report 7316153-1 (Version None)
Quarter: 2011Q1

REPORT INFORMATION
  Report Type: 
  Country: None (occurrence: None)
  Receive Date: 20110225
  Receipt Date: 20110222
  Transmission Date: 20110831
  Serious: Yes (Other)
  Sender: FDA-Public Use
  Company Number: US-PFIZER INC-2011039565

PATIENT
  Sex: Female

DRUGS (2)
  1. XANAX [Suspect]
     Indication: PANIC DISORDER
     Dosage: 0.5 UNK, UNK
  2. ADVAIR DISKUS 100/50 [Suspect]

REACTIONS (3)
  - HEART INJURY [None]
  - DEPENDENCE [None]
  - DRY MOUTH [None]
